FAERS Safety Report 9228587 (Version 1)
Quarter: 2013Q2

REPORT INFORMATION
  Report Type: Report from Study
  Country: BE (occurrence: BE)
  Receive Date: 20130412
  Receipt Date: 20130412
  Transmission Date: 20140414
  Serious: Yes (Other)
  Sender: FDA-Public Use
  Company Number: BE-ROCHE-1211417

PATIENT
  Sex: 0

DRUGS (3)
  1. ALTEPLASE [Suspect]
     Indication: ACUTE MYOCARDIAL INFARCTION
     Dosage: 15 MG IV BOLUS, FOLLOWED BY INFUSION OF 0.75 MG/KG (TO A MAXIMUM OF 50 MG) OVER 30 MIN AND THEN INFU
     Route: 042
  2. ASPIRIN [Suspect]
     Indication: ACUTE MYOCARDIAL INFARCTION
     Route: 048
  3. HEPARIN [Suspect]
     Indication: ACUTE MYOCARDIAL INFARCTION
     Dosage: IV BOLUS FOLLOWED BY MAINTENANCE INFUSION OF 12 U/KG/H
     Route: 042

REACTIONS (3)
  - Cerebrovascular accident [Unknown]
  - Myocardial infarction [Unknown]
  - Cardiac failure [Unknown]
